FAERS Safety Report 5664553-8 (Version None)
Quarter: 2008Q1

REPORT INFORMATION
  Report Type: 
  Country: None (occurrence: None)
  Receive Date: 20080314
  Receipt Date: 20080307
  Transmission Date: 20080703
  Serious: Yes (Other)
  Sender: FDA-Public Use
  Company Number: US-JNJFOC-20080302343

PATIENT
  Age: 6 Year
  Sex: Female
  Weight: 23.59 kg

DRUGS (4)
  1. TYLENOL [Suspect]
     Indication: NASOPHARYNGITIS
     Route: 048
  2. TYLENOL [Suspect]
     Indication: PYREXIA
     Route: 048
  3. TYLENOL [Suspect]
     Indication: SINUS CONGESTION
     Route: 048
  4. VITAMINS W;FLOURIDE [Concomitant]

REACTIONS (1)
  - CONVULSION [None]
